FAERS Safety Report 25422369 (Version 4)
Quarter: 2025Q3

REPORT INFORMATION
  Report Type: Report from Study
  Country: US (occurrence: US)
  Receive Date: 20250611
  Receipt Date: 20250901
  Transmission Date: 20251020
  Serious: No
  Sender: DECIPHERA PHARMACEUTICALS
  Company Number: US-DECIPHERA PHARMACEUTICALS LLC-2025US000647

PATIENT
  Age: 52 Year
  Sex: Female

DRUGS (1)
  1. ROMVIMZA [Suspect]
     Active Substance: VIMSELTINIB
     Indication: Neoplasm
     Dosage: 30 MILLIGRAM, TWICE WEEKLY (72 HOURS APART)
     Route: 048
     Dates: start: 20250509, end: 20250811

REACTIONS (11)
  - Haemoglobin decreased [Unknown]
  - Blood glucose increased [Unknown]
  - Pain [Unknown]
  - Tumour pain [Unknown]
  - Muscular weakness [Unknown]
  - Blood creatine phosphokinase MM increased [Unknown]
  - Face oedema [Not Recovered/Not Resolved]
  - Oedema peripheral [Unknown]
  - Blood alkaline phosphatase increased [Unknown]
  - Aspartate aminotransferase increased [Unknown]
  - Hypertension [Unknown]

NARRATIVE: CASE EVENT DATE: 20250101
